FAERS Safety Report 23956323 (Version 1)
Quarter: 2024Q2

REPORT INFORMATION
  Report Type: Spontaneous
  Country: US (occurrence: US)
  Receive Date: 20240610
  Receipt Date: 20240610
  Transmission Date: 20240716
  Serious: No
  Sender: FDA-Public Use
  Company Number: US-SA-SAC20240605001451

PATIENT
  Age: 74 Year
  Sex: Female

DRUGS (24)
  1. DUPIXENT [Suspect]
     Active Substance: DUPILUMAB
     Indication: Asthma
     Dosage: 300MG QOW
     Route: 058
  2. ALBUTEROL SULFATE [Concomitant]
     Active Substance: ALBUTEROL SULFATE
  3. ALENDRONATE [Concomitant]
     Active Substance: ALENDRONATE SODIUM
  4. ASPIRIN [Concomitant]
     Active Substance: ASPIRIN
  5. ATORVASTATIN [Concomitant]
     Active Substance: ATORVASTATIN
  6. AZELASTINE HYDROCHLORIDE [Concomitant]
     Active Substance: AZELASTINE HYDROCHLORIDE
  7. B12 ACTIVE [Concomitant]
  8. CLONAZEPAM [Concomitant]
     Active Substance: CLONAZEPAM
  9. ESTRADIOL [Concomitant]
     Active Substance: ESTRADIOL
  10. FISH OIL [Concomitant]
     Active Substance: FISH OIL
  11. FLUTICASONE [Concomitant]
     Active Substance: FLUTICASONE
  12. FOLIC ACID [Concomitant]
     Active Substance: FOLIC ACID
  13. FUROSEMIDE [Concomitant]
     Active Substance: FUROSEMIDE
  14. LACOSAMIDE [Concomitant]
     Active Substance: LACOSAMIDE
  15. METOLAZONE [Concomitant]
     Active Substance: METOLAZONE
  16. POTASSIUM CHLORIDE [Concomitant]
     Active Substance: POTASSIUM CHLORIDE
  17. PREDNISONE [Concomitant]
     Active Substance: PREDNISONE
  18. SERTRALINE HYDROCHLORIDE [Concomitant]
     Active Substance: SERTRALINE HYDROCHLORIDE
  19. ASCORBIC ACID [Concomitant]
     Active Substance: ASCORBIC ACID
  20. VITAMIN D NOS [Concomitant]
     Active Substance: CHOLECALCIFEROL\ERGOCALCIFEROL
  21. NITROFURANTOIN [Concomitant]
     Active Substance: NITROFURANTOIN
  22. GLUCOSAN [GLUCOSAMINE SULFATE] [Concomitant]
  23. VITAMIN D3 [Concomitant]
     Active Substance: CHOLECALCIFEROL
  24. BREZTRI [Concomitant]
     Active Substance: BUDESONIDE\FORMOTEROL\GLYCOPYRROLATE

REACTIONS (4)
  - Feeling abnormal [Not Recovered/Not Resolved]
  - Gait disturbance [Not Recovered/Not Resolved]
  - Fatigue [Not Recovered/Not Resolved]
  - Dysstasia [Not Recovered/Not Resolved]

NARRATIVE: CASE EVENT DATE: 20240501
